FAERS Safety Report 11283082 (Version 1)
Quarter: 2015Q3

REPORT INFORMATION
  Report Type: Spontaneous
  Country: US (occurrence: None)
  Receive Date: 20150717
  Receipt Date: 20150717
  Transmission Date: 20151125
  Serious: No
  Sender: FDA-Public Use
  Company Number: None

PATIENT
  Age: 68 Year
  Sex: Male
  Weight: 167.83 kg

DRUGS (16)
  1. LOPRESSOR [Concomitant]
     Active Substance: METOPROLOL TARTRATE
  2. CARDIOLITE [Suspect]
     Active Substance: TECHNETIUM TC-99M SESTAMIBI\TETRAKIS(2-METHOXYISOBUTYLISOCYANIDE)COPPER(I) TETRAFLUOROBORATE
     Indication: CARDIAC STRESS TEST
     Dates: start: 20150713, end: 20150713
  3. COUMADIN [Concomitant]
     Active Substance: WARFARIN SODIUM
  4. NORVASC [Concomitant]
     Active Substance: AMLODIPINE BESYLATE
  5. CELEXA [Concomitant]
     Active Substance: CITALOPRAM HYDROBROMIDE
  6. METFORMIN-XR [Concomitant]
  7. DIOVAN [Concomitant]
     Active Substance: VALSARTAN
  8. CENTRUM SILVER [Concomitant]
     Active Substance: VITAMINS
  9. BUPROPRION [Concomitant]
     Active Substance: BUPROPION
  10. DIPHENHYDRAMINE. [Concomitant]
     Active Substance: DIPHENHYDRAMINE
  11. HYTRIN [Concomitant]
     Active Substance: TERAZOSIN HYDROCHLORIDE
  12. ACETAMINOPHEN. [Concomitant]
     Active Substance: ACETAMINOPHEN
  13. LASIX [Concomitant]
     Active Substance: FUROSEMIDE
  14. GLUCOTROL [Concomitant]
     Active Substance: GLIPIZIDE
  15. ZOCOR [Concomitant]
     Active Substance: SIMVASTATIN
  16. JANUVIA [Concomitant]
     Active Substance: SITAGLIPTIN PHOSPHATE

REACTIONS (4)
  - Pollakiuria [None]
  - Bladder pain [None]
  - Myalgia [None]
  - Sleep disorder [None]

NARRATIVE: CASE EVENT DATE: 20150714
